FAERS Safety Report 6555306-7 (Version None)
Quarter: 2010Q1

REPORT INFORMATION
  Report Type: 
  Country: None (occurrence: None)
  Receive Date: 20100128
  Receipt Date: 20090720
  Transmission Date: 20100710
  Serious: Yes (Other)
  Sender: FDA-Public Use
  Company Number: A0778574A

PATIENT
  Age: 47 Year
  Sex: Female
  Weight: 68.2 kg

DRUGS (2)
  1. WELLBUTRIN [Suspect]
     Indication: DEPRESSION
     Dates: start: 20090101, end: 20090218
  2. LEXAPRO [Concomitant]
     Dates: start: 20090218

REACTIONS (2)
  - CONVULSION [None]
  - TREMOR [None]
